FAERS Safety Report 8840568 (Version 1)
Quarter: 2012Q4

REPORT INFORMATION
  Report Type: 
  Country: US (occurrence: US)
  Receive Date: 20121015
  Receipt Date: 20121015
  Transmission Date: 20130627
  Serious: Yes (Other)
  Sender: FDA-Public Use
  Company Number: US-BAXTER-2012BAX019957

PATIENT
  Age: 23 Month
  Sex: Female

DRUGS (1)
  1. KIOVIG HUMAN NORMAL IMMUNOGLOBULIN (IVIG) 10% [Suspect]
     Indication: INFECTION PROPHYLAXIS
     Route: 042

REACTIONS (2)
  - Transfusion reaction [Unknown]
  - False positive investigation result [Unknown]
